FAERS Safety Report 9952286 (Version 2)
Quarter: 2014Q1

REPORT INFORMATION
  Report Type: Report from Study
  Country: US (occurrence: US)
  Receive Date: 20140304
  Receipt Date: 20140304
  Transmission Date: 20141002
  Serious: No
  Sender: FDA-Public Use
  Company Number: US-ABBVIE-12P-163-1019921-00

PATIENT
  Age: 32 Year
  Sex: Female

DRUGS (10)
  1. HUMIRA [Suspect]
     Indication: RHEUMATOID ARTHRITIS
     Dosage: EVERY OTHER SUNDAY
     Dates: start: 20120830
  2. METHOTREXATE [Concomitant]
     Indication: RHEUMATOID ARTHRITIS
  3. FOLIC ACID [Concomitant]
     Indication: RHEUMATOID ARTHRITIS
  4. THYROXINE [Concomitant]
     Indication: HYPOTHYROIDISM
  5. PROZAC [Concomitant]
     Indication: ANXIETY
  6. PROZAC [Concomitant]
     Indication: DEPRESSION
  7. WELLBUTRIN [Concomitant]
     Indication: ANXIETY
  8. WELLBUTRIN [Concomitant]
     Indication: DEPRESSION
  9. CLONAZEPAM [Concomitant]
     Indication: ANXIETY
  10. YASMIN [Concomitant]
     Indication: CONTRACEPTION

REACTIONS (1)
  - Injection site pain [Unknown]
